FAERS Safety Report 16688132 (Version 1)
Quarter: 2019Q3

REPORT INFORMATION
  Report Type: Spontaneous
  Country: BR (occurrence: BR)
  Receive Date: 20190809
  Receipt Date: 20190809
  Transmission Date: 20191004
  Serious: Yes (Disabling, Other)
  Sender: FDA-Public Use
  Company Number: PHHY2019BR182866

PATIENT
  Age: 77 Year
  Sex: Female

DRUGS (1)
  1. EXELON PATCH [Suspect]
     Active Substance: RIVASTIGMINE
     Indication: PRODUCT USED FOR UNKNOWN INDICATION
     Dosage: 4.6 MG QD (PATCH 5 (CM2), 9 MG RIVASTIGMINE BASE)
     Route: 062

REACTIONS (7)
  - Walking disability [Unknown]
  - Parkinson^s disease [Not Recovered/Not Resolved]
  - Dementia [Unknown]
  - Femur fracture [Unknown]
  - Fall [Unknown]
  - Condition aggravated [Unknown]
  - Confusional state [Unknown]
